FAERS Safety Report 5096181-X (Version None)
Quarter: 2006Q3

REPORT INFORMATION
  Report Type: 
  Country: None (occurrence: None)
  Receive Date: 20060905
  Receipt Date: 20060802
  Transmission Date: 20061208
  Serious: Yes (Hospitalization)
  Sender: FDA-Public Use
  Company Number: JP-ROCHE-457944

PATIENT
  Age: 66 Year
  Sex: Male

DRUGS (4)
  1. PERDIPINE [Suspect]
     Indication: HYPERTENSION
     Route: 041
  2. MICARDIS [Concomitant]
     Indication: HYPERTENSION
     Route: 048
  3. TAKEPRON [Concomitant]
     Dosage: ORODISPERSABLE TABLET
     Route: 048
  4. ATELEC [Concomitant]
     Route: 048

REACTIONS (2)
  - HAEMODIALYSIS [None]
  - RENAL IMPAIRMENT [None]
